FAERS Safety Report 11719900 (Version 1)
Quarter: 2015Q4

REPORT INFORMATION
  Report Type: Spontaneous
  Country: BR (occurrence: BR)
  Receive Date: 20151110
  Receipt Date: 20151110
  Transmission Date: 20160304
  Serious: Yes (Other)
  Sender: FDA-Public Use
  Company Number: BR-ROCHE-1658126

PATIENT
  Sex: Female
  Weight: 70 kg

DRUGS (4)
  1. ALENIA (BRAZIL) [Concomitant]
     Active Substance: BUDESONIDE\FORMOTEROL FUMARATE
     Route: 065
     Dates: start: 2008
  2. BUDESONID [Concomitant]
     Active Substance: BUDESONIDE
     Route: 065
     Dates: start: 2008
  3. XOLAIR [Suspect]
     Active Substance: OMALIZUMAB
     Indication: ASTHMA
     Route: 058
  4. BUDESONID [Concomitant]
     Active Substance: BUDESONIDE
     Route: 065
     Dates: start: 2008

REACTIONS (3)
  - Decreased activity [Not Recovered/Not Resolved]
  - Movement disorder [Not Recovered/Not Resolved]
  - Dyspnoea [Not Recovered/Not Resolved]
